FAERS Safety Report 9445532 (Version 5)
Quarter: 2013Q3

REPORT INFORMATION
  Report Type: Report from Study
  Country: DE (occurrence: DE)
  Receive Date: 20130807
  Receipt Date: 20130930
  Transmission Date: 20140515
  Serious: Yes (Hospitalization)
  Sender: FDA-Public Use
  Company Number: DE-TEVA-424416USA

PATIENT
  Sex: Female
  Weight: 78 kg

DRUGS (4)
  1. BENDAMUSTINE [Suspect]
     Indication: PLASMA CELL MYELOMA
     Route: 042
     Dates: start: 20130114, end: 20130423
  2. LENALIDOMIDE [Suspect]
     Indication: PRODUCT USED FOR UNKNOWN INDICATION
     Dosage: 25 MILLIGRAM DAILY; UID/QD
     Route: 048
     Dates: start: 20130114, end: 20130709
  3. DEXAMETHASONE [Suspect]
     Indication: PRODUCT USED FOR UNKNOWN INDICATION
     Dosage: ON DAY 1,8,15,22.
     Route: 048
     Dates: start: 20130114, end: 20130708
  4. PEGFILGRASTIM [Suspect]
     Indication: PRODUCT USED FOR UNKNOWN INDICATION
     Dosage: UNKNOWN/D
     Route: 058
     Dates: start: 20130320, end: 20130424

REACTIONS (1)
  - Diarrhoea haemorrhagic [Recovered/Resolved]
